FAERS Safety Report 7829923-8 (Version None)
Quarter: 2011Q4

REPORT INFORMATION
  Report Type: 
  Country: None (occurrence: None)
  Receive Date: 20111018
  Receipt Date: 20111006
  Transmission Date: 20120403
  Serious: Yes (Hospitalization)
  Sender: FDA-Public Use
  Company Number: CR11-0178

PATIENT
  Age: 81 Year
  Sex: Male

DRUGS (4)
  1. ASPIRIN [Concomitant]
  2. PRIMATENE MIST [Suspect]
     Indication: DYSPNOEA
     Dosage: 1 PUFF REPEAT 1MIN /3HR
     Dates: start: 20110725, end: 20110726
  3. AMLODIPINE [Concomitant]
  4. LEVOTHYROXINE SODIUM [Concomitant]

REACTIONS (1)
  - HEART RATE INCREASED [None]
